FAERS Safety Report 17425661 (Version 1)
Quarter: 2020Q1

REPORT INFORMATION
  Report Type: Spontaneous
  Country: US (occurrence: US)
  Receive Date: 20200217
  Receipt Date: 20200217
  Transmission Date: 20200409
  Serious: Yes (Other)
  Sender: FDA-Public Use
  Company Number: US-REGENERON PHARMACEUTICALS, INC.-2020-19051

PATIENT

DRUGS (2)
  1. EYLEA [Suspect]
     Active Substance: AFLIBERCEPT
     Indication: DIABETIC COMPLICATION
     Dosage: OD, MONTHLY
     Dates: start: 2019
  2. EYLEA [Suspect]
     Active Substance: AFLIBERCEPT
     Dosage: OS, MONTHLY
     Dates: start: 2019

REACTIONS (2)
  - Cataract [Unknown]
  - Eye haemorrhage [Unknown]
